FAERS Safety Report 11554723 (Version 2)
Quarter: 2015Q4

REPORT INFORMATION
  Report Type: Spontaneous
  Country: US (occurrence: US)
  Receive Date: 20150925
  Receipt Date: 20151023
  Transmission Date: 20160304
  Serious: Yes (Hospitalization, Disabling, Other)
  Sender: FDA-Public Use
  Company Number: US-009507513-1203USA03837

PATIENT
  Sex: Female

DRUGS (2)
  1. FOSAMAX [Suspect]
     Active Substance: ALENDRONATE SODIUM
     Indication: OSTEOPOROSIS
     Dosage: 70 MG, UNK
     Route: 048
     Dates: start: 200005, end: 200704
  2. ALENDRONATE SODIUM. [Suspect]
     Active Substance: ALENDRONATE SODIUM
     Indication: OSTEOPOROSIS
     Dosage: 70 MG, UNK
     Route: 048
     Dates: start: 20090821, end: 20101223

REACTIONS (13)
  - Tonsillectomy [Unknown]
  - Knee arthroplasty [Unknown]
  - Hypertension [Unknown]
  - Osteoarthritis [Unknown]
  - Hypercholesterolaemia [Unknown]
  - Bunion operation [Unknown]
  - Gastrooesophageal reflux disease [Unknown]
  - Femur fracture [Unknown]
  - Hypotension [Unknown]
  - Hysterectomy [Unknown]
  - Anaemia postoperative [Unknown]
  - Electrocardiogram T wave inversion [Unknown]
  - Appendicectomy [Unknown]

NARRATIVE: CASE EVENT DATE: 20090628
